FAERS Safety Report 11202384 (Version 2)
Quarter: 2015Q3

REPORT INFORMATION
  Report Type: Spontaneous
  Country: US (occurrence: US)
  Receive Date: 20150619
  Receipt Date: 20150716
  Transmission Date: 20151125
  Serious: Yes (Other)
  Sender: FDA-Public Use
  Company Number: US-GLAXOSMITHKLINE-US2015GSK073103

PATIENT
  Age: 83 Year
  Sex: Male

DRUGS (1)
  1. MEKINIST [Suspect]
     Active Substance: TRAMETINIB DIMETHYL SULFOXIDE
     Indication: N-RAS GENE MUTATION

REACTIONS (3)
  - Metastases to central nervous system [Unknown]
  - Purpura [Unknown]
  - Dermatitis acneiform [Unknown]
